FAERS Safety Report 4620349-7 (Version None)
Quarter: 2005Q1

REPORT INFORMATION
  Report Type: 
  Country: None (occurrence: None)
  Receive Date: 20050323
  Receipt Date: 20050323
  Transmission Date: 20050727
  Serious: No
  Sender: FDA-Public Use
  Company Number: None

PATIENT
  Sex: Female
  Weight: 79.5 kg

DRUGS (3)
  1. CISPLATIN [Suspect]
     Indication: SMALL CELL LUNG CANCER LIMITED STAGE
     Dosage: 60MG/M2 IV
     Route: 042
  2. MANNITOL [Suspect]
     Dosage: 12.5 GM IV OVER 2 HOURS
     Route: 042
  3. ETOPOSIDE [Suspect]
     Dosage: 120 MG/M2  IV OVER 1 HOUR  ; 240 MG/M2 PO AS A SINGLE DOSE PER DAY, TAKEN IN THE MORNING, ONE HOUR B
     Route: 042

REACTIONS (1)
  - WHITE BLOOD CELL COUNT DECREASED [None]
